FAERS Safety Report 5004443-7 (Version None)
Quarter: 2006Q2

REPORT INFORMATION
  Report Type: 
  Country: None (occurrence: None)
  Receive Date: 20060517
  Receipt Date: 20041123
  Transmission Date: 20061013
  Serious: Yes (Hospitalization, Disabling)
  Sender: FDA-Public Use
  Company Number: US-ROCHE-387378

PATIENT
  Age: 16 Year
  Sex: Female
  Weight: 81.6 kg

DRUGS (3)
  1. ACCUTANE [Suspect]
     Route: 048
     Dates: start: 20010716, end: 20010815
  2. ACCUTANE [Suspect]
     Dosage: DOSAGE REGIMEN: ALTERNATING DOSE OF 40MG AND 80MG.
     Route: 048
     Dates: start: 20010815, end: 20020115
  3. BIRTH CONTROL PILLS NOS [Concomitant]
     Route: 048

REACTIONS (26)
  - ABNORMAL BEHAVIOUR [None]
  - ANAEMIA [None]
  - ANGER [None]
  - BLOOD CHOLESTEROL INCREASED [None]
  - BLOOD TRIGLYCERIDES INCREASED [None]
  - CERVICAL DYSPLASIA [None]
  - COLITIS [None]
  - COLITIS ULCERATIVE [None]
  - DEPRESSED MOOD [None]
  - GASTROINTESTINAL DISORDER [None]
  - HEADACHE [None]
  - HEPATIC ENZYME INCREASED [None]
  - HUMAN PAPILLOMA VIRUS TEST POSITIVE [None]
  - ILEITIS [None]
  - INFLAMMATORY BOWEL DISEASE [None]
  - INFLUENZA LIKE ILLNESS [None]
  - INTESTINAL HAEMORRHAGE [None]
  - MEGACOLON [None]
  - MULTI-ORGAN DISORDER [None]
  - PLATELET COUNT INCREASED [None]
  - POUCHITIS [None]
  - RECTAL HAEMORRHAGE [None]
  - SELF INJURIOUS BEHAVIOUR [None]
  - TACHYCARDIA [None]
  - URTICARIA [None]
  - VISION BLURRED [None]
